FAERS Safety Report 5393551-7 (Version None)
Quarter: 2007Q3

REPORT INFORMATION
  Report Type: 
  Country: None (occurrence: None)
  Receive Date: 20070723
  Receipt Date: 20060809
  Transmission Date: 20080115
  Serious: No
  Sender: FDA-Public Use
  Company Number: A0616228A

PATIENT
  Age: 60 Year
  Sex: Female

DRUGS (6)
  1. AVANDIA [Suspect]
     Dosage: 8MG PER DAY
     Route: 048
     Dates: start: 20060724
  2. GLYBURIDE [Suspect]
     Dates: end: 20060101
  3. METFORMIN HCL [Suspect]
     Route: 048
     Dates: end: 20060101
  4. LISINOPRIL [Concomitant]
  5. ZOLOFT [Concomitant]
  6. AMBIEN [Concomitant]

REACTIONS (6)
  - ADVERSE DRUG REACTION [None]
  - BURNING SENSATION [None]
  - MYALGIA [None]
  - NERVE COMPRESSION [None]
  - NEURALGIA [None]
  - PARAESTHESIA [None]
